FAERS Safety Report 19413898 (Version 2)
Quarter: 2021Q2

REPORT INFORMATION
  Report Type: Spontaneous
  Country: BR (occurrence: BR)
  Receive Date: 20210614
  Receipt Date: 20210627
  Transmission Date: 20210717
  Serious: Yes (Other)
  Sender: FDA-Public Use
  Company Number: BR-ABBVIE-21K-020-3944814-00

PATIENT
  Sex: Female

DRUGS (1)
  1. HUMIRA [Suspect]
     Active Substance: ADALIMUMAB
     Indication: ARTHRITIS
     Dosage: UNSPECIFIED DOSE?UNKNOWN FREQUENCY
     Route: 058
     Dates: start: 2013

REACTIONS (1)
  - Pseudolymphoma [Unknown]

NARRATIVE: CASE EVENT DATE: 202012
